FAERS Safety Report 17369546 (Version 2)
Quarter: 2020Q3

REPORT INFORMATION
  Report Type: Spontaneous
  Country: JP (occurrence: JP)
  Receive Date: 20200204
  Receipt Date: 20200713
  Transmission Date: 20201102
  Serious: Yes (Hospitalization)
  Sender: FDA-Public Use
  Company Number: NVSJ2020JP001384

PATIENT
  Sex: Male

DRUGS (4)
  1. TEGRETOL [Suspect]
     Active Substance: CARBAMAZEPINE
     Indication: EPILEPSY
     Dosage: 900 MG
     Route: 048
  2. MYSTAN [Concomitant]
     Active Substance: CLOBAZAM
     Indication: PRODUCT USED FOR UNKNOWN INDICATION
     Dosage: UNK
     Route: 065
  3. PHENOBAL [Concomitant]
     Active Substance: PHENOBARBITAL
     Indication: PRODUCT USED FOR UNKNOWN INDICATION
     Dosage: UNK
     Route: 065
  4. TEGRETOL [Suspect]
     Active Substance: CARBAMAZEPINE
     Dosage: 1000 MG
     Route: 048

REACTIONS (3)
  - Product dose omission in error [Unknown]
  - Status epilepticus [Recovered/Resolved]
  - Anticonvulsant drug level decreased [Recovered/Resolved]

NARRATIVE: CASE EVENT DATE: 20200216
